FAERS Safety Report 18303006 (Version 40)
Quarter: 2024Q3

REPORT INFORMATION
  Report Type: Spontaneous
  Country: CA (occurrence: CA)
  Receive Date: 20200924
  Receipt Date: 20240919
  Transmission Date: 20241016
  Serious: Yes (Hospitalization, Other)
  Sender: CELLTRION
  Company Number: CA-CELLTRION INC.-2020CA026239

PATIENT

DRUGS (47)
  1. INFLECTRA [Suspect]
     Active Substance: INFLIXIMAB-DYYB
     Indication: Crohn^s disease
     Dosage: 500 MG EVERY 0, 2, 6 WEEKS, THEN EVERY 8 WEEKS
     Route: 041
     Dates: start: 20200804
  2. INFLECTRA [Suspect]
     Active Substance: INFLIXIMAB-DYYB
     Dosage: 500 MG EVERY 0, 2, 6 WEEKS, THEN EVERY 8 WEEKS
     Route: 041
     Dates: start: 20200804
  3. INFLECTRA [Suspect]
     Active Substance: INFLIXIMAB-DYYB
     Dosage: 500 MG EVERY 0, 2, 6 WEEKS, THEN EVERY 8 WEEKS
     Route: 041
     Dates: start: 20200818
  4. INFLECTRA [Suspect]
     Active Substance: INFLIXIMAB-DYYB
     Dosage: 500 MG EVERY 0, 2, 6 WEEKS, THEN EVERY 8 WEEKS
     Route: 041
     Dates: start: 20200917
  5. INFLECTRA [Suspect]
     Active Substance: INFLIXIMAB-DYYB
     Dosage: 500 MG EVERY 0, 2, 6 WEEKS, THEN EVERY 8 WEEKS
     Route: 041
     Dates: start: 20201110
  6. INFLECTRA [Suspect]
     Active Substance: INFLIXIMAB-DYYB
     Dosage: 500 MG EVERY 0, 2, 6 WEEKS, THEN EVERY 8 WEEKS
     Route: 041
     Dates: start: 20210108
  7. INFLECTRA [Suspect]
     Active Substance: INFLIXIMAB-DYYB
     Dosage: 500 MG EVERY 0, 2, 6 WEEKS, THEN EVERY 8 WEEKS
     Route: 041
     Dates: start: 20210108
  8. INFLECTRA [Suspect]
     Active Substance: INFLIXIMAB-DYYB
     Dosage: 500 MG EVERY 0, 2, 6 WEEKS, THEN EVERY 8 WEEKS
     Route: 041
     Dates: start: 20210303, end: 20210303
  9. INFLECTRA [Suspect]
     Active Substance: INFLIXIMAB-DYYB
     Dosage: 500 MG EVERY 0, 2, 6 WEEKS, THEN EVERY 8 WEEKS
     Route: 041
     Dates: start: 20210303, end: 20210303
  10. INFLECTRA [Suspect]
     Active Substance: INFLIXIMAB-DYYB
     Dosage: 10 MG/KG EVERY 6 WEEK (1000 MG)
     Route: 041
     Dates: start: 20210416
  11. INFLECTRA [Suspect]
     Active Substance: INFLIXIMAB-DYYB
     Dosage: 10 MG/KG EVERY 6 WEEK (1000 MG)
     Route: 041
     Dates: start: 20210527
  12. INFLECTRA [Suspect]
     Active Substance: INFLIXIMAB-DYYB
     Dosage: 10 MG/KG EVERY 6 WEEK (1000 MG)
     Route: 041
     Dates: start: 20210707, end: 20210707
  13. INFLECTRA [Suspect]
     Active Substance: INFLIXIMAB-DYYB
     Dosage: 10 MG/KG EVERY 6 WEEK (1000 MG)
     Route: 041
     Dates: start: 20210819
  14. INFLECTRA [Suspect]
     Active Substance: INFLIXIMAB-DYYB
     Dosage: 10 MG/KG EVERY 6 WEEK (1000 MG)
     Route: 041
     Dates: start: 20210929
  15. INFLECTRA [Suspect]
     Active Substance: INFLIXIMAB-DYYB
     Dosage: 10 MG/KG EVERY 6 WEEK (1000 MG)
     Route: 041
     Dates: start: 20211110
  16. INFLECTRA [Suspect]
     Active Substance: INFLIXIMAB-DYYB
     Dosage: 10 MG/KG EVERY 6 WEEK (1000 MG)
     Route: 041
     Dates: start: 20211221
  17. INFLECTRA [Suspect]
     Active Substance: INFLIXIMAB-DYYB
     Dosage: 10 MG/KG EVERY 6 WEEK (1000 MG)
     Route: 041
     Dates: start: 20220202
  18. INFLECTRA [Suspect]
     Active Substance: INFLIXIMAB-DYYB
     Dosage: 10 MG/KG EVERY 6 WEEK (1000 MG)
     Route: 041
     Dates: start: 20220316
  19. INFLECTRA [Suspect]
     Active Substance: INFLIXIMAB-DYYB
     Dosage: 10 MG/KG EVERY 6 WEEK (1000 MG)
     Route: 041
     Dates: start: 20220427
  20. INFLECTRA [Suspect]
     Active Substance: INFLIXIMAB-DYYB
     Dosage: 10 MG/KG EVERY 6 WEEK (1000 MG)
     Route: 041
     Dates: start: 20220607
  21. INFLECTRA [Suspect]
     Active Substance: INFLIXIMAB-DYYB
     Dosage: 10 MG/KG EVERY 6 WEEK (1000 MG)
     Route: 041
     Dates: start: 20220720
  22. INFLECTRA [Suspect]
     Active Substance: INFLIXIMAB-DYYB
     Dosage: 10 MG/KG EVERY 6 WEEKS (1000 MG)
     Route: 041
     Dates: start: 20220831
  23. INFLECTRA [Suspect]
     Active Substance: INFLIXIMAB-DYYB
     Dosage: 10 MG/KG, EVERY 6 WEEKS (1000 MG)
     Route: 041
     Dates: start: 20221012
  24. INFLECTRA [Suspect]
     Active Substance: INFLIXIMAB-DYYB
     Dosage: 10 MG/KG, EVERY 6 WEEKS (1000 MG)
     Route: 041
     Dates: start: 20221124
  25. INFLECTRA [Suspect]
     Active Substance: INFLIXIMAB-DYYB
     Dosage: 10 MG/KG, EVERY 6 WEEKS (1000 MG)
     Route: 041
     Dates: start: 20230105
  26. INFLECTRA [Suspect]
     Active Substance: INFLIXIMAB-DYYB
     Dosage: 10 MG/KG (1000 MG), EVERY 6 WEEKS
     Route: 041
     Dates: start: 20230219
  27. INFLECTRA [Suspect]
     Active Substance: INFLIXIMAB-DYYB
     Dosage: 10 MG/KG (1000 MG), EVERY 6 WEEKS
     Route: 041
     Dates: start: 20230331
  28. INFLECTRA [Suspect]
     Active Substance: INFLIXIMAB-DYYB
     Dosage: 1000 MG, EVERY 6 WEEKS (10 MG/KG)
     Route: 041
     Dates: start: 20230512
  29. INFLECTRA [Suspect]
     Active Substance: INFLIXIMAB-DYYB
     Dosage: 1000 MG, EVERY 6 WEEKS (10 MG/KG)
     Route: 041
     Dates: start: 20230623
  30. INFLECTRA [Suspect]
     Active Substance: INFLIXIMAB-DYYB
     Dosage: 1000 MG AFTER 6 WEEKS (10 MG/KG)
     Route: 041
     Dates: start: 20230804
  31. INFLECTRA [Suspect]
     Active Substance: INFLIXIMAB-DYYB
     Dosage: 10 MG/KG (1000 MG) AFTER 6 WEEKS
     Route: 041
     Dates: start: 20230915
  32. INFLECTRA [Suspect]
     Active Substance: INFLIXIMAB-DYYB
     Dosage: 1000 MG AFTER 6 WEEKS
     Route: 041
     Dates: start: 20231027
  33. INFLECTRA [Suspect]
     Active Substance: INFLIXIMAB-DYYB
     Dosage: 10 MG/KG (1000 MG), EVERY 6 WEEKS
     Route: 041
     Dates: start: 20231208
  34. INFLECTRA [Suspect]
     Active Substance: INFLIXIMAB-DYYB
     Dosage: 10 MG/KG EVERY 6 WEEKS (1000 MG)
     Route: 041
     Dates: start: 20240119
  35. INFLECTRA [Suspect]
     Active Substance: INFLIXIMAB-DYYB
     Dosage: 1000 MG, EVERY 6 WEEKS
     Route: 041
     Dates: start: 20240301
  36. INFLECTRA [Suspect]
     Active Substance: INFLIXIMAB-DYYB
     Dosage: 10 MG/KG,  EVERY 6 WEEKS (1000 MG)
     Route: 041
     Dates: start: 20240412
  37. INFLECTRA [Suspect]
     Active Substance: INFLIXIMAB-DYYB
     Dosage: 10 MG/KG, EVERY 6 WEEKS (1000 MG) (DOSAGE ADMINISTERED: 1000 MG, 7 WEEKS AND 6 DAYS)
     Route: 041
     Dates: start: 20240606
  38. BUDESONIDE [Concomitant]
     Active Substance: BUDESONIDE
     Dosage: UNK
  39. VITAMIN B12 [Concomitant]
     Active Substance: CYANOCOBALAMIN
     Dosage: UNK
  40. DULOXETINE [Concomitant]
     Active Substance: DULOXETINE
     Dosage: 60 MG
     Route: 048
  41. MAGNESIUM [Concomitant]
     Active Substance: MAGNESIUM
     Dosage: UNK
  42. OZEMPIC [Concomitant]
     Active Substance: SEMAGLUTIDE
     Dosage: 1 ML
     Route: 058
  43. RABEPRAZOLE [Concomitant]
     Active Substance: RABEPRAZOLE
     Dosage: 20 MG
     Route: 048
  44. TOPIRAMATE [Concomitant]
     Active Substance: TOPIRAMATE
     Dosage: 100 MG
     Route: 048
  45. VITAMIN C [Concomitant]
     Active Substance: ASCORBIC ACID
     Dosage: UNK
  46. CHOLECALCIFEROL [Concomitant]
     Active Substance: CHOLECALCIFEROL
     Dosage: 1000 IU
     Route: 048
  47. ENTYVIO [Concomitant]
     Active Substance: VEDOLIZUMAB
     Route: 042

REACTIONS (36)
  - COVID-19 [Recovering/Resolving]
  - Seizure [Unknown]
  - Condition aggravated [Recovering/Resolving]
  - Aphasia [Recovering/Resolving]
  - Constipation [Recovering/Resolving]
  - Paralysis [Recovering/Resolving]
  - Petit mal epilepsy [Recovering/Resolving]
  - Hypotension [Unknown]
  - Depressed level of consciousness [Unknown]
  - Disease recurrence [Unknown]
  - Mobility decreased [Unknown]
  - Muscular weakness [Unknown]
  - Uveitis [Recovered/Resolved]
  - Syncope [Unknown]
  - Cerebral haemorrhage [Unknown]
  - Condition aggravated [Not Recovered/Not Resolved]
  - Intracranial aneurysm [Unknown]
  - Migraine [Recovered/Resolved]
  - Abdominal distension [Unknown]
  - Constipation [Unknown]
  - Cold sweat [Unknown]
  - Chest pain [Unknown]
  - Decreased appetite [Unknown]
  - Heart rate increased [Unknown]
  - Feeling cold [Unknown]
  - Malaise [Unknown]
  - Therapeutic response shortened [Unknown]
  - Arthralgia [Not Recovered/Not Resolved]
  - Costochondritis [Recovering/Resolving]
  - Off label use [Unknown]
  - Off label use [Unknown]
  - Intentional product use issue [Unknown]
  - Asthenia [Unknown]
  - Hemiplegic migraine [Unknown]
  - Arthritis [Unknown]
  - Wisdom teeth removal [Unknown]

NARRATIVE: CASE EVENT DATE: 20200804
